FAERS Safety Report 7267984-8 (Version None)
Quarter: 2011Q1

REPORT INFORMATION
  Report Type: 
  Country: None (occurrence: None)
  Receive Date: 20110107
  Receipt Date: 20110107
  Transmission Date: 20110831
  Serious: Yes (Life-Threatening, Hospitalization, Other)
  Sender: FDA-Public Use
  Company Number: DSM-2011-00027

PATIENT
  Age: 60 Year
  Sex: Male
  Weight: 76 kg

DRUGS (1)
  1. OLMETEC PLUS (HYDROCHLOROTHIAZIDE, OLMESARTAN) [Suspect]
     Indication: HYPERTENSION
     Dosage: 20/12.5MG (1 IN 1 D), ORAL
     Route: 048
     Dates: start: 20100329, end: 20100401

REACTIONS (3)
  - RENAL FAILURE ACUTE [None]
  - GLOMERULONEPHRITIS [None]
  - VASCULITIS [None]
